FAERS Safety Report 4994293-X (Version None)
Quarter: 2006Q1

REPORT INFORMATION
  Report Type: 
  Country: None (occurrence: None)
  Receive Date: 20060314
  Receipt Date: 20050708
  Transmission Date: 20060701
  Serious: Yes (Other)
  Sender: FDA-Public Use
  Company Number: 200512267BCC

PATIENT
  Age: 53 Year
  Sex: Female
  Weight: 104.3273 kg

DRUGS (11)
  1. ALEVE (CAPLET) [Suspect]
     Indication: BACK PAIN
     Dosage: 220 MG, QD, ORAL; ORAL
     Route: 048
  2. ZOCOR [Concomitant]
  3. ASPIRIN [Concomitant]
  4. ACIPHEX [Concomitant]
  5. ZYRTEC [Concomitant]
  6. ZESTRIL [Concomitant]
  7. FLONASE [Concomitant]
  8. PATANOL [Concomitant]
  9. CENTRUM SILVER [Concomitant]
  10. CALCIUM GLUCONATE [Concomitant]
  11. FIBER [Concomitant]

REACTIONS (2)
  - INFECTION [None]
  - VASCULITIS [None]
